FAERS Safety Report 7197979-4 (Version None)
Quarter: 2010Q4

REPORT INFORMATION
  Report Type: 
  Country: None (occurrence: None)
  Receive Date: 20101227
  Receipt Date: 20101209
  Transmission Date: 20110411
  Serious: Yes (Other)
  Sender: FDA-Public Use
  Company Number: US-ROCHE-749057

PATIENT
  Sex: Male

DRUGS (4)
  1. PEGINTERFERON ALFA-2A [Suspect]
     Route: 058
     Dates: start: 20091121, end: 20100918
  2. RIBAVIRIN [Suspect]
     Route: 048
     Dates: start: 20091121, end: 20100918
  3. PENICILLIN [Concomitant]
     Dates: start: 20101130, end: 20101208
  4. RABIES VACCINE [Concomitant]
     Dosage: 1 DOSE
     Dates: start: 20101130, end: 20101130

REACTIONS (1)
  - ABORTION SPONTANEOUS [None]
